FAERS Safety Report 4932374-7 (Version None)
Quarter: 2006Q1

REPORT INFORMATION
  Report Type: 
  Country: None (occurrence: None)
  Receive Date: 20060228
  Receipt Date: 20060217
  Transmission Date: 20060701
  Serious: Yes (Death, Other)
  Sender: FDA-Public Use
  Company Number: 2006JP000394

PATIENT
  Age: 46 Year
  Sex: Male

DRUGS (5)
  1. PROGRAF [Suspect]
     Indication: BONE MARROW TRANSPLANT
  2. METHOTREXATE [Concomitant]
  3. CELLCEPT [Concomitant]
  4. METHYLPREDNISOLONE [Concomitant]
  5. CYCLOPHOSPHAMIDE [Concomitant]

REACTIONS (2)
  - PNEUMONIA CYTOMEGALOVIRAL [None]
  - PSEUDOMONAL SEPSIS [None]
